FAERS Safety Report 10145491 (Version 4)
Quarter: 2014Q2

REPORT INFORMATION
  Report Type: Report from Study
  Country: DE (occurrence: DE)
  Receive Date: 20140501
  Receipt Date: 20140508
  Transmission Date: 20141212
  Serious: Yes (Hospitalization)
  Sender: FDA-Public Use
  Company Number: DE-AMGEN INC.-DEUCT2014011067

PATIENT
  Age: 38 Year
  Sex: Male
  Weight: 87.48 kg

DRUGS (3)
  1. ETANERCEPT [Suspect]
     Indication: PRODUCT USED FOR UNKNOWN INDICATION
     Dosage: 25 MG, 2X/WEEK
     Route: 065
     Dates: start: 20070322, end: 20140206
  2. IBUPROFEN [Concomitant]
     Indication: BACK PAIN
     Dosage: 800 MG, AS NEEDED
     Dates: start: 20130621
  3. PREGABALIN [Concomitant]
     Dosage: 75 MG, EVERY 3 DAYS INCREASE AT 50 MG UNTIL 300 MG PER DAY

REACTIONS (1)
  - Relapsing-remitting multiple sclerosis [Not Recovered/Not Resolved]
